FAERS Safety Report 25361926 (Version 1)
Quarter: 2025Q2

REPORT INFORMATION
  Report Type: Report from Study
  Country: GB (occurrence: GB)
  Receive Date: 20250527
  Receipt Date: 20250527
  Transmission Date: 20250717
  Serious: Yes (Other)
  Sender: SAMSUNG BIOEPIS
  Company Number: GB-SAMSUNG BIOEPIS-SB-2025-18187

PATIENT
  Age: 79 Year
  Sex: Male

DRUGS (1)
  1. PYZCHIVA [Suspect]
     Active Substance: USTEKINUMAB-TTWE
     Indication: Crohn^s disease
     Route: 058
     Dates: start: 202410

REACTIONS (5)
  - Bladder cancer [Unknown]
  - Rash pruritic [Unknown]
  - Rash vesicular [Unknown]
  - Oral herpes [Unknown]
  - Herpes zoster [Unknown]
